FAERS Safety Report 8942062 (Version 1)
Quarter: 2012Q4

REPORT INFORMATION
  Report Type: 
  Country: US (occurrence: US)
  Receive Date: 20121130
  Receipt Date: 20121130
  Transmission Date: 20130627
  Serious: Yes (Death, Hospitalization)
  Sender: FDA-Public Use
  Company Number: US-GLAXOSMITHKLINE-A0814615A

PATIENT
  Age: 46 Year
  Sex: Male
  Weight: 56.8 kg

DRUGS (1)
  1. AVANDIA [Suspect]
     Indication: TYPE 2 DIABETES MELLITUS
     Dosage: 8MG Unknown
     Route: 048

REACTIONS (2)
  - Death [Fatal]
  - Condition aggravated [Unknown]
